FAERS Safety Report 13849807 (Version 2)
Quarter: 2017Q4

REPORT INFORMATION
  Report Type: Report from Study
  Country: US (occurrence: US)
  Receive Date: 20170809
  Receipt Date: 20171128
  Transmission Date: 20180320
  Serious: No
  Sender: FDA-Public Use
  Company Number: PHEH2017US024817

PATIENT

DRUGS (1)
  1. COSENTYX [Suspect]
     Active Substance: SECUKINUMAB
     Indication: ANKYLOSING SPONDYLITIS
     Dosage: 150 MG, Q2W
     Route: 058

REACTIONS (2)
  - Inappropriate schedule of drug administration [Unknown]
  - Furuncle [Unknown]
